FAERS Safety Report 9906944 (Version 2)
Quarter: 2014Q1

REPORT INFORMATION
  Report Type: Spontaneous
  Country: US (occurrence: US)
  Receive Date: 20140218
  Receipt Date: 20140218
  Transmission Date: 20141002
  Serious: No
  Sender: FDA-Public Use
  Company Number: US-GILEAD-2012-0052499

PATIENT
  Age: 35 Year
  Sex: Female
  Weight: 152.38 kg

DRUGS (7)
  1. LETAIRIS [Suspect]
     Indication: PULMONARY HYPERTENSION
     Dosage: 10 MG, UNK
     Route: 048
     Dates: start: 20100707, end: 20120217
  2. ASPIRIN [Concomitant]
  3. CARVEDILOL [Concomitant]
  4. FUROSEMIDE [Concomitant]
  5. REVATIO [Concomitant]
  6. SPIRONOLACTONE [Concomitant]
  7. LISINOPRIL [Concomitant]

REACTIONS (1)
  - Anxiety [Recovered/Resolved]
